FAERS Safety Report 14034324 (Version 2)
Quarter: 2017Q4

REPORT INFORMATION
  Report Type: Spontaneous
  Country: TN (occurrence: TN)
  Receive Date: 20171003
  Receipt Date: 20171201
  Transmission Date: 20180321
  Serious: Yes (Life-Threatening, Hospitalization, Other)
  Sender: FDA-Public Use
  Company Number: TN-VISTAPHARM, INC.-VER201709-000710

PATIENT
  Age: 26 Year
  Sex: Female

DRUGS (7)
  1. LEVOFLOXACIN. [Concomitant]
     Active Substance: LEVOFLOXACIN
     Indication: ANTIBIOTIC THERAPY
  2. CISATRACURIUM. [Concomitant]
     Active Substance: CISATRACURIUM
     Dosage: INJECTION
  3. ALBUTEROL. [Suspect]
     Active Substance: ALBUTEROL
     Indication: ASTHMA
  4. MIDAZOLAM-FENTANYL [Concomitant]
  5. SALMETEROL [Suspect]
     Active Substance: SALMETEROL
     Indication: ASTHMA
  6. HYDROCORTISONE HEMISUCCINATE [Concomitant]
     Active Substance: HYDROCORTISONE HEMISUCCINATE
     Indication: ASTHMA
  7. ALBUTEROL. [Suspect]
     Active Substance: ALBUTEROL
     Route: 042

REACTIONS (3)
  - Acute respiratory failure [Unknown]
  - Myocarditis [Unknown]
  - Pulmonary oedema [Recovering/Resolving]
